FAERS Safety Report 8371474-9 (Version None)
Quarter: 2012Q2

REPORT INFORMATION
  Report Type: 
  Country: None (occurrence: None)
  Receive Date: 20120518
  Receipt Date: 20120508
  Transmission Date: 20120825
  Serious: Yes (Hospitalization, Disabling, Other)
  Sender: FDA-Public Use
  Company Number: US-ABBOTT-12P-163-0934277-00

PATIENT
  Sex: Male
  Weight: 81.72 kg

DRUGS (9)
  1. HUMIRA [Suspect]
     Indication: PSORIATIC ARTHROPATHY
     Route: 058
     Dates: start: 20110701, end: 20110816
  2. PREDNISONE [Concomitant]
     Indication: PSORIATIC ARTHROPATHY
  3. ASCORBIC ACID [Concomitant]
     Indication: PRODUCT USED FOR UNKNOWN INDICATION
  4. CYMBALTA [Concomitant]
     Indication: DEPRESSION
  5. VITAMIN D [Concomitant]
     Indication: PRODUCT USED FOR UNKNOWN INDICATION
  6. OXYCONTIN [Concomitant]
     Indication: PAIN
  7. ZIAC [Concomitant]
     Indication: HYPERTENSION
  8. DILAUDID [Concomitant]
     Indication: PAIN
  9. XANAX [Concomitant]
     Indication: ANXIETY

REACTIONS (15)
  - NAUSEA [None]
  - SKIN MASS [None]
  - HEADACHE [None]
  - INTRAOCULAR PRESSURE INCREASED [None]
  - CATARACT [None]
  - ERYTHEMA [None]
  - SCAR [None]
  - GLAUCOMA [None]
  - DIABETES MELLITUS [None]
  - BLINDNESS UNILATERAL [None]
  - ABNORMAL SENSATION IN EYE [None]
  - ARTHROPOD BITE [None]
  - MALAISE [None]
  - VOMITING [None]
  - SKIN WOUND [None]
